FAERS Safety Report 5977154 (Version 8)
Quarter: 2013Q1

REPORT INFORMATION
  Report Type: Report from Study
  Country: SE (occurrence: SE)
  Receive Date: 20060206
  Receipt Date: 20130305
  Transmission Date: 20140127
  Serious: Yes (Hospitalization, Other)
  Sender: FDA-Public Use
  Company Number: SE-ABBOTT-06P-150-0323411-00

PATIENT
  Age: 62 Year
  Sex: Female

DRUGS (21)
  1. HUMIRA 40 MG/ 0.8 ML PRE-FILLED SYRINGE [Suspect]
     Indication: RHEUMATOID ARTHRITIS
     Route: 058
     Dates: start: 20030506, end: 20050223
  2. METHOTREXATE [Concomitant]
     Indication: RHEUMATOID ARTHRITIS
     Route: 048
  3. METHOTREXATE [Concomitant]
  4. PREDNISOLON [Concomitant]
     Indication: PRODUCT USED FOR UNKNOWN INDICATION
     Route: 048
  5. BRUFEN RETARD [Concomitant]
     Indication: PRODUCT USED FOR UNKNOWN INDICATION
     Route: 048
  6. METHOJECT [Concomitant]
     Indication: RHEUMATOID ARTHRITIS
     Route: 050
  7. WARFARIN SODIUM [Concomitant]
     Indication: PRODUCT USED FOR UNKNOWN INDICATION
     Route: 048
     Dates: start: 2004
  8. SIMVASTATIN [Concomitant]
     Indication: PRODUCT USED FOR UNKNOWN INDICATION
     Dosage: AT NIGHT
     Route: 048
  9. LEKOVIT CA [Concomitant]
     Indication: PRODUCT USED FOR UNKNOWN INDICATION
     Route: 048
  10. FRAGMIN [Concomitant]
     Indication: PRODUCT USED FOR UNKNOWN INDICATION
     Dosage: WHEN PROTHROMBIN IN COMPLEX {1.8
     Route: 050
  11. SELOKEN [Concomitant]
     Indication: PRODUCT USED FOR UNKNOWN INDICATION
     Route: 048
  12. PREDNISOLON [Concomitant]
     Indication: PRODUCT USED FOR UNKNOWN INDICATION
     Route: 048
  13. IMOVANE [Concomitant]
     Indication: PRODUCT USED FOR UNKNOWN INDICATION
     Dosage: AT NIGHT
     Route: 048
  14. PULMICORT [Concomitant]
     Indication: PRODUCT USED FOR UNKNOWN INDICATION
     Route: 055
  15. ACETYLCYSTEINE [Concomitant]
     Indication: PRODUCT USED FOR UNKNOWN INDICATION
     Route: 048
  16. PANODIL [Concomitant]
     Indication: PRODUCT USED FOR UNKNOWN INDICATION
     Route: 048
  17. LEXINOR [Concomitant]
     Indication: PRODUCT USED FOR UNKNOWN INDICATION
     Route: 048
  18. MABTHERA [Concomitant]
     Indication: RHEUMATOID ARTHRITIS
  19. CYCLOFOSFAMID [Concomitant]
     Indication: PRODUCT USED FOR UNKNOWN INDICATION
  20. TUMOR NECROSIS FACTOR NOS [Concomitant]
     Indication: PRODUCT USED FOR UNKNOWN INDICATION
     Dates: start: 200208
  21. TUMOR NECROSIS FACTOR NOS [Concomitant]

REACTIONS (14)
  - Cerebrovascular accident [Recovered/Resolved]
  - Transient ischaemic attack [Recovered/Resolved]
  - Cerebral haemorrhage [Recovered/Resolved]
  - Rheumatoid nodule [Unknown]
  - Cardiac disorder [Unknown]
  - Myocardial infarction [Recovered/Resolved]
  - Embolism [Unknown]
  - Anaemia [Unknown]
  - Mitral valve disease [Unknown]
  - Cardiac valve vegetation [Unknown]
  - Cardiac valve disease [Unknown]
  - Cerebral infarction [Unknown]
  - Rheumatoid arthritis [Unknown]
  - Inflammation [Unknown]
